FAERS Safety Report 6458762-8 (Version None)
Quarter: 2009Q4

REPORT INFORMATION
  Report Type: 
  Country: None (occurrence: None)
  Receive Date: 20091127
  Receipt Date: 20091118
  Transmission Date: 20100525
  Serious: Yes (Hospitalization)
  Sender: FDA-Public Use
  Company Number: RU-ROCHE-669920

PATIENT
  Sex: Female

DRUGS (2)
  1. BONIVA [Suspect]
     Indication: OSTEOPOROSIS
     Dosage: FORM: INFUSION.
     Route: 042
     Dates: start: 20090820
  2. CALCIUM-D3 NYCOMED [Concomitant]
     Indication: OSTEOPOROSIS
     Route: 048

REACTIONS (4)
  - ASTHMA [None]
  - INFLUENZA LIKE ILLNESS [None]
  - PRODUCTIVE COUGH [None]
  - RHINITIS [None]
